FAERS Safety Report 26004378 (Version 1)
Quarter: 2025Q4

REPORT INFORMATION
  Report Type: Report from Study
  Country: US (occurrence: US)
  Receive Date: 20251106
  Receipt Date: 20251106
  Transmission Date: 20260118
  Serious: Yes (Other)
  Sender: NOVARTIS
  Company Number: US-002147023-NVSC2025US170284

PATIENT
  Sex: Female

DRUGS (1)
  1. KISQALI [Suspect]
     Active Substance: RIBOCICLIB SUCCINATE
     Indication: Breast cancer metastatic
     Dosage: 400 MG, QD
     Route: 048
     Dates: start: 202507

REACTIONS (4)
  - Clostridium difficile infection [Unknown]
  - Urinary tract infection [Unknown]
  - Fungal infection [Unknown]
  - Illness [Unknown]

NARRATIVE: CASE EVENT DATE: 20250701
